FAERS Safety Report 5204601-2 (Version None)
Quarter: 2007Q1

REPORT INFORMATION
  Report Type: 
  Country: None (occurrence: None)
  Receive Date: 20070110
  Receipt Date: 20060519
  Transmission Date: 20070707
  Serious: No
  Sender: FDA-Public Use
  Company Number: US-BRISTOL-MYERS SQUIBB COMPANY-13384623

PATIENT
  Age: 40 Year
  Sex: Male
  Weight: 106 kg

DRUGS (4)
  1. ABILIFY [Suspect]
     Indication: SELF ESTEEM DECREASED
     Route: 048
     Dates: start: 20030901
  2. ABILIFY [Suspect]
     Indication: NERVOUSNESS
     Route: 048
     Dates: start: 20030901
  3. ABILIFY [Suspect]
     Indication: THINKING ABNORMAL
     Route: 048
     Dates: start: 20030901
  4. ZOCOR [Concomitant]

REACTIONS (1)
  - INSOMNIA [None]
